FAERS Safety Report 5669880-6 (Version None)
Quarter: 2008Q1

REPORT INFORMATION
  Report Type: 
  Country: None (occurrence: None)
  Receive Date: 20080314
  Receipt Date: 20080314
  Transmission Date: 20080703
  Serious: Yes (Other)
  Sender: FDA-Public Use
  Company Number: None

PATIENT
  Sex: Male
  Weight: 72.1219 kg

DRUGS (1)
  1. SIMVASTATIN [Suspect]
     Indication: BLOOD CHOLESTEROL
     Dosage: 10MG ONCE QHS PO 1ST OF GENERIC DISPENSING
     Route: 048
     Dates: start: 20060708

REACTIONS (4)
  - DRUG HYPERSENSITIVITY [None]
  - SKIN EXFOLIATION [None]
  - SKIN PLAQUE [None]
  - THERAPEUTIC RESPONSE UNEXPECTED WITH DRUG SUBSTITUTION [None]
